FAERS Safety Report 26132592 (Version 1)
Quarter: 2025Q4

REPORT INFORMATION
  Report Type: Spontaneous
  Country: EU (occurrence: EU)
  Receive Date: 20251208
  Receipt Date: 20251208
  Transmission Date: 20260117
  Serious: Yes (Other)
  Sender: BRISTOL-MYERS SQUIBB COMPANY
  Company Number: EU-BRISTOL-MYERS SQUIBB COMPANY-2025-163179

PATIENT
  Age: 84 Year
  Sex: Male

DRUGS (1)
  1. APIXABAN [Suspect]
     Active Substance: APIXABAN
     Indication: Atrial fibrillation

REACTIONS (9)
  - Gastrointestinal haemorrhage [Unknown]
  - Urinary incontinence [Unknown]
  - Renal failure [Unknown]
  - Non-small cell lung cancer [Unknown]
  - Chronic obstructive pulmonary disease [Unknown]
  - Cardiac aneurysm [Unknown]
  - Aortic dilatation [Unknown]
  - Carotid arteriosclerosis [Unknown]
  - Carotid artery stenosis [Unknown]

NARRATIVE: CASE EVENT DATE: 20241101
